FAERS Safety Report 5404534-2 (Version None)
Quarter: 2007Q3

REPORT INFORMATION
  Report Type: 
  Country: None (occurrence: None)
  Receive Date: 20070802
  Receipt Date: 20070727
  Transmission Date: 20080115
  Serious: Yes (Death)
  Sender: FDA-Public Use
  Company Number: KP-ROXANE LABORATORIES, INC-2007-BP-18165RO

PATIENT
  Age: 11 Year
  Sex: Male

DRUGS (5)
  1. CYCLOPHOSPHAMIDE [Suspect]
     Indication: EWING'S SARCOMA
  2. ADRIAMYCIN PFS [Suspect]
     Indication: EWING'S SARCOMA
  3. IFOSFAMIDE [Suspect]
     Indication: EWING'S SARCOMA
  4. ETOPOSIDE [Suspect]
     Indication: EWING'S SARCOMA
  5. VINCRISTINE [Suspect]
     Indication: EWING'S SARCOMA

REACTIONS (3)
  - EPISTAXIS [None]
  - GASTROINTESTINAL HAEMORRHAGE [None]
  - HAEMATURIA [None]
